FAERS Safety Report 13741806 (Version 5)
Quarter: 2017Q4

REPORT INFORMATION
  Report Type: Spontaneous
  Country: FR (occurrence: FR)
  Receive Date: 20170711
  Receipt Date: 20171130
  Transmission Date: 20180320
  Serious: Yes (Disabling, Other)
  Sender: FDA-Public Use
  Company Number: FR-APOTEX-2017AP014871

PATIENT

DRUGS (19)
  1. SOLUPRED                           /00016201/ [Concomitant]
     Active Substance: PREDNISOLONE
     Indication: PRODUCT USED FOR UNKNOWN INDICATION
     Dosage: UNK
     Route: 065
     Dates: start: 20110726
  2. PRAXINOR                           /01236902/ [Concomitant]
     Dosage: UNK
     Route: 065
     Dates: start: 20101127
  3. SEROPRAM (CITALOPRAM HYDROBROMIDE) [Concomitant]
     Active Substance: CITALOPRAM HYDROBROMIDE
     Indication: PRODUCT USED FOR UNKNOWN INDICATION
     Dosage: UNK
     Route: 065
     Dates: start: 20110318
  4. VALIUM [Concomitant]
     Active Substance: DIAZEPAM
     Indication: PRODUCT USED FOR UNKNOWN INDICATION
     Dosage: UNK
     Route: 065
     Dates: start: 20101115
  5. RIVOTRIL [Suspect]
     Active Substance: CLONAZEPAM
     Indication: NECK PAIN
     Dosage: UNK
     Route: 065
     Dates: start: 20110219
  6. TEMERIT [Concomitant]
     Active Substance: NEBIVOLOL
     Indication: TACHYCARDIA
     Dosage: UNK
     Route: 065
     Dates: start: 20151115
  7. STRESAM [Concomitant]
     Active Substance: ETIFOXINE
     Indication: PRODUCT USED FOR UNKNOWN INDICATION
     Dosage: UNK
     Route: 065
     Dates: start: 20120327
  8. DEROXAT [Suspect]
     Active Substance: PAROXETINE HYDROCHLORIDE
     Indication: POST-TRAUMATIC STRESS DISORDER
     Dosage: UNK
     Route: 065
     Dates: start: 20110201
  9. DOLIPRANE [Concomitant]
     Active Substance: ACETAMINOPHEN
     Indication: PRODUCT USED FOR UNKNOWN INDICATION
     Dosage: UNK
     Route: 065
     Dates: start: 20110201
  10. LAROXYL [Concomitant]
     Active Substance: AMITRIPTYLINE HYDROCHLORIDE
     Indication: PRODUCT USED FOR UNKNOWN INDICATION
     Dosage: UNK
     Route: 065
     Dates: start: 20110219
  11. PRAXINOR                           /00276601/ [Concomitant]
     Active Substance: CAFEDRINE\THEODRENALINE
     Dosage: UNK
     Route: 065
     Dates: start: 20101127
  12. ATARAX [Concomitant]
     Active Substance: HYDROXYZINE HYDROCHLORIDE
     Dosage: UNK
     Route: 065
     Dates: start: 20120121
  13. TETRAZEPAM [Suspect]
     Active Substance: TETRAZEPAM
     Indication: PRODUCT USED FOR UNKNOWN INDICATION
     Dosage: 50 MG, UNK
     Route: 065
     Dates: start: 20110726
  14. MIOREL (THIOCOLCHICOSIDE) [Concomitant]
     Active Substance: THIOCOLCHICOSIDE
     Indication: PRODUCT USED FOR UNKNOWN INDICATION
     Dosage: UNK
     Route: 065
     Dates: start: 20100606
  15. PAROXETINE BIOGARAN FILM-COATED TABLET [Suspect]
     Active Substance: PAROXETINE HYDROCHLORIDE
     Indication: POST-TRAUMATIC STRESS DISORDER
     Dosage: UNK
     Route: 065
     Dates: start: 20110201
  16. DI-ANTALVIC [Concomitant]
     Active Substance: ACETAMINOPHEN\PROPOXYPHENE HYDROCHLORIDE
     Indication: PRODUCT USED FOR UNKNOWN INDICATION
     Dosage: UNK
     Route: 065
     Dates: start: 20100606
  17. TANGANIL [Concomitant]
     Active Substance: ACETYLLEUCINE
     Indication: PRODUCT USED FOR UNKNOWN INDICATION
     Dosage: UNK
     Route: 065
     Dates: start: 20110303
  18. UVEDOSE [Concomitant]
     Active Substance: CHOLECALCIFEROL
     Indication: PRODUCT USED FOR UNKNOWN INDICATION
     Dosage: UNK
     Route: 065
     Dates: start: 20110219
  19. IXEL [Concomitant]
     Active Substance: MILNACIPRAN HYDROCHLORIDE
     Indication: PRODUCT USED FOR UNKNOWN INDICATION
     Dosage: UNK
     Route: 065
     Dates: start: 20110322

REACTIONS (19)
  - Tachycardia [Unknown]
  - Neck pain [Unknown]
  - Presyncope [Unknown]
  - Anxiety [Recovered/Resolved]
  - Hallucination, visual [Recovered/Resolved]
  - Vertigo [Unknown]
  - Erectile dysfunction [Unknown]
  - Sleep disorder [Unknown]
  - Disturbance in attention [Unknown]
  - Suicidal ideation [Recovered/Resolved]
  - Accommodation disorder [Unknown]
  - Memory impairment [Recovered/Resolved]
  - Hallucination, auditory [Recovered/Resolved]
  - Tinnitus [Unknown]
  - Photophobia [Unknown]
  - Agoraphobia [Recovered/Resolved]
  - Panic attack [Recovered/Resolved]
  - Iatrogenic injury [Unknown]
  - Affect lability [Unknown]
